FAERS Safety Report 15980500 (Version 4)
Quarter: 2019Q2

REPORT INFORMATION
  Report Type: Spontaneous
  Country: US (occurrence: US)
  Receive Date: 20190219
  Receipt Date: 20190508
  Transmission Date: 20190711
  Serious: No
  Sender: FDA-Public Use
  Company Number: US-PFIZER INC-2019066135

PATIENT
  Age: 55 Year
  Sex: Female
  Weight: 60.32 kg

DRUGS (1)
  1. ADVIL [Suspect]
     Active Substance: IBUPROFEN
     Dosage: 200 MG, UNK

REACTIONS (3)
  - Urticaria [Unknown]
  - Lip swelling [Unknown]
  - Hypersensitivity [Unknown]
